FAERS Safety Report 25330630 (Version 2)
Quarter: 2025Q2

REPORT INFORMATION
  Report Type: Spontaneous
  Country: PL (occurrence: PL)
  Receive Date: 20250519
  Receipt Date: 20250527
  Transmission Date: 20250716
  Serious: Yes (Death)
  Sender: PFIZER
  Company Number: None

PATIENT
  Age: 5 Week
  Sex: Female
  Weight: 4.2 kg

DRUGS (2)
  1. RAPAMUNE [Suspect]
     Active Substance: SIROLIMUS
     Indication: Vascular malformation
     Dosage: 0.02 MG, 2X/DAY, FREQ:12 H
     Route: 048
     Dates: start: 20250303, end: 20250304
  2. ACETAMINOPHEN [Concomitant]
     Active Substance: ACETAMINOPHEN
     Indication: Pain
     Route: 048
     Dates: start: 20250304, end: 20250304

REACTIONS (23)
  - Multiple organ dysfunction syndrome [Fatal]
  - Pulmonary embolism [Fatal]
  - Cardiac arrest [Fatal]
  - Anaemia [Fatal]
  - Cardiac contractility decreased [Fatal]
  - Haemoglobin decreased [Fatal]
  - Restlessness [Fatal]
  - Crying [Fatal]
  - Abdominal distension [Fatal]
  - Condition aggravated [Fatal]
  - Pallor [Fatal]
  - Abdominal rigidity [Fatal]
  - Gastrointestinal hypomotility [Fatal]
  - Pulmonary oedema [Fatal]
  - Heart rate decreased [Fatal]
  - Electrocardiogram QRS complex prolonged [Fatal]
  - Gallbladder oedema [Fatal]
  - Urinary tract disorder [Fatal]
  - Impaired gastric emptying [Fatal]
  - Superior vena cava stenosis [Fatal]
  - Ejection fraction decreased [Fatal]
  - Off label use [Unknown]
  - Off label use [Unknown]

NARRATIVE: CASE EVENT DATE: 20250303
